FAERS Safety Report 20435018 (Version 1)
Quarter: 2022Q1

REPORT INFORMATION
  Report Type: Other
  Country: None (occurrence: US)
  Receive Date: 20220206
  Receipt Date: 20220206
  Transmission Date: 20220423
  Serious: Yes (Death)
  Sender: FDA-Public Use
  Company Number: US-Intellipharmaceutics Corp.-2124649

PATIENT
  Age: 70 Year
  Sex: Female

DRUGS (6)
  1. QUETIAPINE FUMARATE [Suspect]
     Active Substance: QUETIAPINE FUMARATE
     Indication: Product used for unknown indication
     Route: 048
  2. AMLODIPINE [Suspect]
     Active Substance: AMLODIPINE BESYLATE
     Route: 048
  3. EZETIMIBE [Suspect]
     Active Substance: EZETIMIBE
     Route: 048
  4. ZIPRASIDONE [Suspect]
     Active Substance: ZIPRASIDONE
     Route: 048
  5. ALPRAZOLAM [Suspect]
     Active Substance: ALPRAZOLAM
     Route: 048
  6. GABAPENTIN [Suspect]
     Active Substance: GABAPENTIN
     Route: 048

REACTIONS (1)
  - Completed suicide [Fatal]

NARRATIVE: CASE EVENT DATE: 20200101
